FAERS Safety Report 22283850 (Version 1)
Quarter: 2023Q2

REPORT INFORMATION
  Report Type: Spontaneous
  Country: US (occurrence: None)
  Receive Date: 20230503
  Receipt Date: 20230503
  Transmission Date: 20230722
  Serious: Yes (Other)
  Sender: FDA-Public Use
  Company Number: None

PATIENT
  Age: 70 Year
  Sex: Female

DRUGS (1)
  1. CAPECITABINE [Suspect]
     Active Substance: CAPECITABINE
     Dosage: FREQUENCY : TWICE A DAY;?
     Route: 048
     Dates: start: 20221011

REACTIONS (7)
  - Pelvic pain [None]
  - Decreased appetite [None]
  - Memory impairment [None]
  - Weight decreased [None]
  - Arthralgia [None]
  - Joint range of motion measurement [None]
  - Therapy interrupted [None]

NARRATIVE: CASE EVENT DATE: 20230401
